FAERS Safety Report 5773933-1 (Version None)
Quarter: 2008Q2

REPORT INFORMATION
  Report Type: 
  Country: None (occurrence: None)
  Receive Date: 20080616
  Receipt Date: 20080612
  Transmission Date: 20081010
  Serious: Yes (Hospitalization, Other)
  Sender: FDA-Public Use
  Company Number: D0057670A

PATIENT
  Age: 60 Year
  Sex: Female

DRUGS (2)
  1. AVANDAMET [Suspect]
     Route: 048
     Dates: start: 20050101
  2. METFORMIN HCL [Concomitant]
     Route: 048
     Dates: end: 20050101

REACTIONS (2)
  - ACUTE CORONARY SYNDROME [None]
  - VASCULAR GRAFT [None]
